FAERS Safety Report 8156618-6 (Version None)
Quarter: 2012Q1

REPORT INFORMATION
  Report Type: 
  Country: None (occurrence: None)
  Receive Date: 20120222
  Receipt Date: 20120207
  Transmission Date: 20120608
  Serious: Yes (Other)
  Sender: FDA-Public Use
  Company Number: DE-ARROW GEN-2012-02067

PATIENT

DRUGS (2)
  1. SERTRALINE HYDROCHLORIDE [Suspect]
     Indication: ANXIETY DISORDER
     Dosage: 100 MG, DAILY/STARTING DECEMBER 2009, DOSAGE BETWEEN 50 AND 100 MG/D
     Route: 064
     Dates: start: 20101120, end: 20110812
  2. FOLIC ACID [Concomitant]
     Indication: PROPHYLAXIS OF NEURAL TUBE DEFECT
     Dosage: 0.4 MG, DAILY
     Route: 064

REACTIONS (1)
  - MYOCLONUS [None]
